FAERS Safety Report 6384876-7 (Version None)
Quarter: 2009Q4

REPORT INFORMATION
  Report Type: 
  Country: None (occurrence: None)
  Receive Date: 20091002
  Receipt Date: 20090922
  Transmission Date: 20100525
  Serious: Yes (Hospitalization)
  Sender: FDA-Public Use
  Company Number: US-BIOGENIDEC-2009BI029804

PATIENT
  Age: 57 Year
  Sex: Female

DRUGS (2)
  1. AVONEX [Suspect]
     Indication: MULTIPLE SCLEROSIS
     Route: 030
     Dates: start: 20030606
  2. AVONEX [Suspect]
     Route: 030
     Dates: start: 20060613

REACTIONS (2)
  - MULTIPLE SCLEROSIS RELAPSE [None]
  - SEPSIS [None]
